FAERS Safety Report 11348420 (Version 1)
Quarter: 2015Q3

REPORT INFORMATION
  Report Type: Spontaneous
  Country: US (occurrence: US)
  Receive Date: 20150806
  Receipt Date: 20150806
  Transmission Date: 20151125
  Serious: Yes (Hospitalization)
  Sender: FDA-Public Use
  Company Number: US-PURDUE-USA-2015-0122085

PATIENT
  Age: 7 Year
  Sex: Female

DRUGS (2)
  1. DILAUDID [Suspect]
     Active Substance: HYDROMORPHONE HYDROCHLORIDE
     Indication: PAIN
     Dosage: UNK
     Route: 042
     Dates: start: 20141104
  2. OXYCODONE HYDROCHLORIDE (SIMILAR TO NDA 22-272) [Suspect]
     Active Substance: OXYCODONE HYDROCHLORIDE
     Indication: PAIN
     Dosage: UNK
     Route: 048
     Dates: start: 20141101

REACTIONS (6)
  - Ileus [Not Recovered/Not Resolved]
  - Back pain [Not Recovered/Not Resolved]
  - Lung infection [Not Recovered/Not Resolved]
  - Abdominal pain [Not Recovered/Not Resolved]
  - Bile duct obstruction [Not Recovered/Not Resolved]
  - Cholangitis [Not Recovered/Not Resolved]

NARRATIVE: CASE EVENT DATE: 20141101
